FAERS Safety Report 19180160 (Version 3)
Quarter: 2021Q4

REPORT INFORMATION
  Report Type: Report from Study
  Country: US (occurrence: US)
  Receive Date: 20210426
  Receipt Date: 20211005
  Transmission Date: 20220303
  Serious: No
  Sender: FDA-Public Use
  Company Number: NVSC2021US089942

PATIENT
  Age: 60 Year
  Sex: Female

DRUGS (1)
  1. ENTRESTO [Suspect]
     Active Substance: SACUBITRIL\VALSARTAN
     Indication: Cardiac failure
     Dosage: 100 MG(49.51MG), UNKNOWN
     Route: 048

REACTIONS (2)
  - Heart rate decreased [Unknown]
  - Drug ineffective [Unknown]
